FAERS Safety Report 7603293-2 (Version None)
Quarter: 2011Q3

REPORT INFORMATION
  Report Type: 
  Country: None (occurrence: None)
  Receive Date: 20110712
  Receipt Date: 20110629
  Transmission Date: 20111222
  Serious: Yes (Hospitalization)
  Sender: FDA-Public Use
  Company Number: PHFR2011GB02464

PATIENT
  Sex: Male

DRUGS (2)
  1. CLOZAPINE [Suspect]
     Dosage: UNK
     Dates: start: 20110406
  2. CLOZAPINE [Suspect]
     Indication: SCHIZOPHRENIA
     Dosage: UNK
     Route: 048
     Dates: start: 20100624

REACTIONS (5)
  - ANAEMIA [None]
  - TACHYCARDIA [None]
  - ROAD TRAFFIC ACCIDENT [None]
  - ANTIPSYCHOTIC DRUG LEVEL INCREASED [None]
  - FACE INJURY [None]
